FAERS Safety Report 15263229 (Version 1)
Quarter: 2018Q3

REPORT INFORMATION
  Report Type: Spontaneous
  Country: FR (occurrence: FR)
  Receive Date: 20180810
  Receipt Date: 20180810
  Transmission Date: 20181010
  Serious: Yes (Other)
  Sender: FDA-Public Use
  Company Number: FR-AUROBINDO-AUR-APL-2018-040716

PATIENT
  Age: 32 Year
  Sex: Female

DRUGS (5)
  1. PARACETAMOL [Suspect]
     Active Substance: ACETAMINOPHEN
     Indication: PHARYNGITIS
     Dosage: UNK
     Route: 065
     Dates: start: 20161216
  2. AMOXICILLIN. [Suspect]
     Active Substance: AMOXICILLIN
     Indication: PHARYNGITIS
     Dosage: UNK
     Route: 065
     Dates: start: 20161216, end: 20161218
  3. MAXILASE [Suspect]
     Active Substance: PANCRELIPASE
     Indication: PHARYNGITIS
     Dosage: UNK
     Route: 048
     Dates: start: 20161216, end: 20161223
  4. CLINDAMYCIN. [Suspect]
     Active Substance: CLINDAMYCIN
     Indication: PHARYNGITIS
     Dosage: UNK
     Route: 065
     Dates: start: 20161218, end: 20161223
  5. CLAVULANIC ACID [Suspect]
     Active Substance: CLAVULANIC ACID
     Indication: PHARYNGITIS
     Dosage: UNK
     Route: 065
     Dates: start: 20161216, end: 20161218

REACTIONS (1)
  - Toxic skin eruption [Recovered/Resolved]

NARRATIVE: CASE EVENT DATE: 20161218
